FAERS Safety Report 4426106-9 (Version None)
Quarter: 2004Q3

REPORT INFORMATION
  Report Type: 
  Country: None (occurrence: None)
  Receive Date: 20040811
  Receipt Date: 20040728
  Transmission Date: 20050211
  Serious: No
  Sender: FDA-Public Use
  Company Number: 2004222885CA

PATIENT
  Age: 73 Year
  Sex: Male
  Weight: 80.7 kg

DRUGS (5)
  1. BEXTRA [Suspect]
     Indication: PAIN
     Dosage: 20 MG, QD, ORAL
     Route: 048
     Dates: start: 20040609, end: 20040615
  2. VASOTEC [Concomitant]
  3. LIPITOR [Concomitant]
  4. HYDROCHLOROTHIAZIDE [Concomitant]
  5. TYLENOL W/ CODEINE NO. 3 [Concomitant]

REACTIONS (7)
  - ERYTHEMA [None]
  - FACE OEDEMA [None]
  - OEDEMA [None]
  - PURPURA [None]
  - PYREXIA [None]
  - RASH [None]
  - SKIN STRIAE [None]
